FAERS Safety Report 6120055-6 (Version None)
Quarter: 2009Q1

REPORT INFORMATION
  Report Type: 
  Country: None (occurrence: None)
  Receive Date: 20090316
  Receipt Date: 20090306
  Transmission Date: 20090719
  Serious: Yes (Hospitalization)
  Sender: FDA-Public Use
  Company Number: RO-AMGEN-US338364

PATIENT
  Age: 36 Year
  Sex: Male

DRUGS (5)
  1. ENBREL [Suspect]
     Indication: JUVENILE ARTHRITIS
     Route: 058
     Dates: start: 20090123, end: 20090206
  2. ENBREL [Suspect]
     Indication: ANKYLOSING SPONDYLITIS
  3. DICLOFENAC [Concomitant]
     Indication: JUVENILE ARTHRITIS
     Dosage: ^100 MG PER DAY FOR 7- 10 DAYS PER WEEK^
     Dates: end: 20090130
  4. DICLOFENAC [Concomitant]
     Indication: ANKYLOSING SPONDYLITIS
  5. PARACETAMOL [Concomitant]

REACTIONS (4)
  - ANAEMIA [None]
  - RENAL FAILURE CHRONIC [None]
  - URINARY BLADDER HAEMORRHAGE [None]
  - URINARY TRACT INFECTION [None]
